FAERS Safety Report 4871512-1 (Version None)
Quarter: 2005Q4

REPORT INFORMATION
  Report Type: 
  Country: None (occurrence: None)
  Receive Date: 20051229
  Receipt Date: 20051220
  Transmission Date: 20060501
  Serious: No
  Sender: FDA-Public Use
  Company Number: US200511002228

PATIENT
  Age: 21 Year
  Sex: Male
  Weight: 83.9 kg

DRUGS (2)
  1. STRATTERA [Suspect]
     Indication: MEMORY IMPAIRMENT
     Dosage: 100 MG  ;   60 MG
     Dates: end: 20050501
  2. STRATTERA [Suspect]
     Indication: MEMORY IMPAIRMENT
     Dosage: 100 MG  ;   60 MG
     Dates: start: 20040701

REACTIONS (1)
  - ALANINE AMINOTRANSFERASE INCREASED [None]
